FAERS Safety Report 22295076 (Version 1)
Quarter: 2023Q2

REPORT INFORMATION
  Report Type: Spontaneous
  Country: US (occurrence: None)
  Receive Date: 20230505
  Receipt Date: 20230505
  Transmission Date: 20230722
  Serious: Yes (Hospitalization)
  Sender: FDA-Public Use
  Company Number: None

PATIENT
  Sex: Male

DRUGS (11)
  1. LENALIDOMIDE [Suspect]
     Active Substance: LENALIDOMIDE
     Indication: Plasma cell myeloma
     Route: 048
     Dates: start: 20230321
  2. DILTIAZEM [Concomitant]
     Active Substance: DILTIAZEM
  3. GLUCOSAMINE [Concomitant]
  4. HYDROCHLOROT [Concomitant]
  5. MULTIPLE VIT TAB [Concomitant]
  6. OMEGA=3 [Concomitant]
  7. OMEPRAZOLE [Concomitant]
     Active Substance: OMEPRAZOLE
  8. OXYCODONE TAB [Concomitant]
  9. PROPAFENONE [Concomitant]
     Active Substance: PROPAFENONE
  10. TYLENOL [Concomitant]
     Active Substance: ACETAMINOPHEN
  11. WARFARIN [Concomitant]

REACTIONS (3)
  - Renal failure [None]
  - Gallbladder disorder [None]
  - Therapy interrupted [None]
